FAERS Safety Report 12621582 (Version 1)
Quarter: 2016Q3

REPORT INFORMATION
  Report Type: Spontaneous
  Country: US (occurrence: US)
  Receive Date: 20160804
  Receipt Date: 20160804
  Transmission Date: 20161109
  Serious: No
  Sender: FDA-Public Use
  Company Number: US-BEH-2016071866

PATIENT
  Sex: Female
  Weight: 74.83 kg

DRUGS (16)
  1. DIPHENHYDRAMINE. [Concomitant]
     Active Substance: DIPHENHYDRAMINE
  2. CARISOPRODOL. [Concomitant]
     Active Substance: CARISOPRODOL
  3. ZEMAIRA [Suspect]
     Active Substance: .ALPHA.1-PROTEINASE INHIBITOR HUMAN
     Indication: ALPHA-1 ANTI-TRYPSIN DEFICIENCY
     Dosage: 65 MG/KG, QW
     Route: 042
  4. NITROFURANTOIN. [Concomitant]
     Active Substance: NITROFURANTOIN
  5. XANAX [Concomitant]
     Active Substance: ALPRAZOLAM
  6. LIDOCAINE. [Concomitant]
     Active Substance: LIDOCAINE
  7. EPIPEN [Concomitant]
     Active Substance: EPINEPHRINE
  8. FLONASE [Concomitant]
     Active Substance: FLUTICASONE PROPIONATE
  9. DOXEPIN [Concomitant]
     Active Substance: DOXEPIN
  10. FLUTICASONE FUROATE [Concomitant]
     Active Substance: FLUTICASONE FUROATE
  11. SODIUM CHLORIDE. [Concomitant]
     Active Substance: SODIUM CHLORIDE
  12. LACTULOSE. [Concomitant]
     Active Substance: LACTULOSE
  13. SEROQUEL [Concomitant]
     Active Substance: QUETIAPINE FUMARATE
  14. DALIRESP [Concomitant]
     Active Substance: ROFLUMILAST
  15. LATANOPROST. [Concomitant]
     Active Substance: LATANOPROST
  16. VENLAFAXINE [Concomitant]
     Active Substance: VENLAFAXINE HYDROCHLORIDE

REACTIONS (1)
  - Blood pressure increased [Unknown]
